FAERS Safety Report 6702905-5 (Version None)
Quarter: 2010Q2

REPORT INFORMATION
  Report Type: 
  Country: None (occurrence: None)
  Receive Date: 20100429
  Receipt Date: 20100423
  Transmission Date: 20101027
  Serious: Yes (Other)
  Sender: FDA-Public Use
  Company Number: CA-ALLERGAN-0807046US

PATIENT
  Sex: Female

DRUGS (4)
  1. BOTOX [Suspect]
     Indication: DRUG USE FOR UNKNOWN INDICATION
     Dosage: 40 UNITS, SINGLE
     Route: 065
     Dates: start: 20070220, end: 20070220
  2. SODIUM CHLORIDE I.V. SOLUTION [Suspect]
     Indication: DRUG USE FOR UNKNOWN INDICATION
     Dosage: 0.8 ML, SINGLE
     Route: 042
     Dates: start: 20070220, end: 20070220
  3. ZYBAN [Concomitant]
     Indication: DRUG USE FOR UNKNOWN INDICATION
  4. CELEBREX [Concomitant]
     Indication: DRUG USE FOR UNKNOWN INDICATION

REACTIONS (2)
  - FACIAL PALSY [None]
  - INJECTION SITE INFLAMMATION [None]
